FAERS Safety Report 11524551 (Version 2)
Quarter: 2015Q4

REPORT INFORMATION
  Report Type: Spontaneous
  Country: None (occurrence: US)
  Receive Date: 20150918
  Receipt Date: 20151027
  Transmission Date: 20160304
  Serious: No
  Sender: FDA-Public Use
  Company Number: US-MATRIXX INITIATIVES, INC.-1042097

PATIENT
  Age: 45 Year
  Weight: 95.46 kg

DRUGS (3)
  1. ZICAM EXTREME CONGESTION RELIEF [Suspect]
     Active Substance: OXYMETAZOLINE HYDROCHLORIDE
     Route: 045
     Dates: start: 20150915, end: 20150915
  2. ZEPHREX [Concomitant]
  3. UNSPECIFIED ASTHMA INHALER [Concomitant]

REACTIONS (1)
  - Anosmia [Recovered/Resolved]

NARRATIVE: CASE EVENT DATE: 20150916
